FAERS Safety Report 18354882 (Version 1)
Quarter: 2020Q4

REPORT INFORMATION
  Report Type: Spontaneous
  Country: US (occurrence: US)
  Receive Date: 20201007
  Receipt Date: 20201007
  Transmission Date: 20210114
  Serious: Yes (Other)
  Sender: FDA-Public Use
  Company Number: US-TEVA-2020-US-1835533

PATIENT
  Sex: Female

DRUGS (3)
  1. TRAZODONE HYDROCHLORIDE PLIVA [Suspect]
     Active Substance: TRAZODONE HYDROCHLORIDE
     Indication: ANXIETY
     Route: 048
     Dates: start: 202008
  2. TRAZODONE HYDROCHLORIDE PLIVA [Suspect]
     Active Substance: TRAZODONE HYDROCHLORIDE
     Indication: DEPRESSION
     Route: 048
     Dates: start: 2000
  3. TRAZODONE HYDROCHLORIDE PLIVA [Suspect]
     Active Substance: TRAZODONE HYDROCHLORIDE
     Indication: INSOMNIA

REACTIONS (5)
  - Poor quality sleep [Unknown]
  - Product use in unapproved indication [Unknown]
  - Scoliosis surgery [Unknown]
  - Drug ineffective [Unknown]
  - Foreign body in throat [Unknown]

NARRATIVE: CASE EVENT DATE: 201409
